FAERS Safety Report 7149509-0 (Version None)
Quarter: 2010Q4

REPORT INFORMATION
  Report Type: 
  Country: None (occurrence: None)
  Receive Date: 20101209
  Receipt Date: 20101129
  Transmission Date: 20110411
  Serious: Yes (Other)
  Sender: FDA-Public Use
  Company Number: PHHY2010JP78379

PATIENT
  Age: 61 Year
  Sex: Male

DRUGS (11)
  1. RASILEZ [Suspect]
     Indication: HYPERTENSION
     Dosage: 150 MG DAILY
     Route: 048
     Dates: start: 20101019, end: 20101112
  2. OLMETEC [Suspect]
     Dosage: 20 MG TWICE DAILY
     Route: 048
     Dates: end: 20101113
  3. DRUG THERAPY NOS [Concomitant]
     Dosage: 150 MG, UNK
     Route: 048
     Dates: start: 20101001, end: 20101112
  4. NORVASC [Concomitant]
     Indication: HYPERTENSION
     Dosage: 5 MG
     Route: 048
  5. NORVASC [Concomitant]
     Dosage: 2.5 MG
     Route: 048
  6. ALDACTONE [Concomitant]
     Indication: HYPERTENSION
     Dosage: 100 MG
     Route: 048
  7. ALDACTONE [Concomitant]
     Dosage: 50 MG
     Route: 048
  8. TENORMIN [Concomitant]
     Dosage: 25 MG
     Route: 048
  9. LANSOPRAZOLE [Concomitant]
     Route: 048
  10. AMOXICILLIN [Concomitant]
     Route: 048
  11. CLARITHROMYCIN [Concomitant]
     Route: 048

REACTIONS (6)
  - BLOOD POTASSIUM INCREASED [None]
  - BLOOD PRESSURE DIASTOLIC DECREASED [None]
  - DIARRHOEA [None]
  - GLOMERULAR FILTRATION RATE DECREASED [None]
  - NEURALGIA [None]
  - RENAL IMPAIRMENT [None]
